FAERS Safety Report 10208083 (Version 1)
Quarter: 2014Q2

REPORT INFORMATION
  Report Type: Spontaneous
  Country: ES (occurrence: None)
  Receive Date: 20140527
  Receipt Date: 20140527
  Transmission Date: 20141212
  Serious: Yes (Hospitalization)
  Sender: FDA-Public Use
  Company Number: 2014P1004328

PATIENT
  Age: 77 Year
  Sex: Male

DRUGS (5)
  1. CARVEDILOL [Suspect]
     Dosage: 6.25MG, QD?25MG,QDX10 DAYS.
  2. CLOPIDOGREL [Concomitant]
  3. FAMOTIDINE [Concomitant]
  4. TELMISARTAN [Concomitant]
  5. AMLODIPINE [Concomitant]

REACTIONS (7)
  - Incorrect dose administered [None]
  - Feeling abnormal [None]
  - Loss of consciousness [None]
  - Injury [None]
  - Disorientation [None]
  - Blood pressure decreased [None]
  - Sinus bradycardia [None]
